FAERS Safety Report 18208138 (Version 3)
Quarter: 2022Q3

REPORT INFORMATION
  Report Type: Spontaneous
  Country: IN (occurrence: IN)
  Receive Date: 20200828
  Receipt Date: 20220714
  Transmission Date: 20221027
  Serious: Yes (Hospitalization, Other)
  Sender: FDA-Public Use
  Company Number: None

PATIENT
  Age: 65 Year
  Sex: Male

DRUGS (7)
  1. DICLOFENAC [Suspect]
     Active Substance: DICLOFENAC
     Indication: Toothache
     Dosage: 300 MG, QD (50 MG 6 TIMES DAILY)
     Route: 065
  2. AMLODIPINE [Concomitant]
     Active Substance: AMLODIPINE BESYLATE
     Indication: Hypertension
     Dosage: 15 MG, QD
     Route: 065
  3. AMLODIPINE [Concomitant]
     Active Substance: AMLODIPINE BESYLATE
     Dosage: 5 MG, QD
     Route: 065
  4. ONDANSETRON [Concomitant]
     Active Substance: ONDANSETRON
     Indication: Pain
     Dosage: UNK, TID (UNK UNK, TID, 8 CCC)
     Route: 042
  5. TRAMADOL [Concomitant]
     Active Substance: TRAMADOL
     Indication: Pain
     Dosage: UNK, INFUSION OF 1 AMPOULE IN 100ML NS
     Route: 042
  6. RANITIDINE [Concomitant]
     Active Substance: RANITIDINE
     Indication: Antacid therapy
     Dosage: 150 MG, QD
     Route: 065
  7. RANITIDINE [Concomitant]
     Active Substance: RANITIDINE
     Indication: Prophylaxis

REACTIONS (4)
  - Acute kidney injury [Unknown]
  - Blood creatinine increased [Recovered/Resolved]
  - Nephropathy toxic [Recovered/Resolved]
  - Haemoglobin decreased [Recovered/Resolved]
